FAERS Safety Report 5878023-5 (Version None)
Quarter: 2008Q3

REPORT INFORMATION
  Report Type: 
  Country: None (occurrence: None)
  Receive Date: 20080909
  Receipt Date: 20080909
  Transmission Date: 20090109
  Serious: No
  Sender: FDA-Public Use
  Company Number: None

PATIENT
  Age: 69 Year
  Sex: Female
  Weight: 102.06 kg

DRUGS (1)
  1. VENLAFAXINE HCL [Suspect]
     Indication: PAIN
     Dosage: 75 MG BID PO
     Route: 048
     Dates: start: 20080727, end: 20080815

REACTIONS (1)
  - DIARRHOEA [None]
